FAERS Safety Report 8510995-2 (Version None)
Quarter: 2012Q3

REPORT INFORMATION
  Report Type: 
  Country: None (occurrence: None)
  Receive Date: 20120710
  Receipt Date: 20120710
  Transmission Date: 20120928
  Serious: Yes (Other)
  Sender: FDA-Public Use
  Company Number: None

PATIENT
  Age: 61 Year
  Sex: Female

DRUGS (2)
  1. MIDODRINE HYDROCHLORIDE [Suspect]
     Indication: HYPOTENSION
     Dosage: 5MG TWICE DAILY PO
     Route: 048
  2. MIDODRINE HYDROCHLORIDE [Suspect]
     Indication: DIZZINESS
     Dosage: 5MG TWICE DAILY PO
     Route: 048

REACTIONS (2)
  - TREMOR [None]
  - PRODUCT SOLUBILITY ABNORMAL [None]
